FAERS Safety Report 9547860 (Version 1)
Quarter: 2013Q3

REPORT INFORMATION
  Report Type: Spontaneous
  Country: US (occurrence: US)
  Receive Date: 20130924
  Receipt Date: 20130924
  Transmission Date: 20140515
  Serious: No
  Sender: FDA-Public Use
  Company Number: US-PURDUE-USA-2011-0079553

PATIENT
  Sex: Male

DRUGS (1)
  1. MORPHINE SULFATE EXTENDED-RELEASE TABLETS (RHODES 74-862) [Suspect]
     Indication: PAIN
     Dosage: 60 MG, TID
     Route: 048

REACTIONS (5)
  - Pain [Unknown]
  - Wrong technique in drug usage process [Unknown]
  - Drug ineffective [Unknown]
  - Inadequate analgesia [Unknown]
  - Inappropriate schedule of drug administration [Unknown]
